FAERS Safety Report 11640928 (Version 2)
Quarter: 2015Q4

REPORT INFORMATION
  Report Type: Spontaneous
  Country: US (occurrence: US)
  Receive Date: 20151019
  Receipt Date: 20151109
  Transmission Date: 20160304
  Serious: Yes (Hospitalization, Disabling, Other)
  Sender: FDA-Public Use
  Company Number: US-PFIZER INC-2015345666

PATIENT
  Age: 76 Year
  Sex: Female
  Weight: 53 kg

DRUGS (17)
  1. LYRICA [Suspect]
     Active Substance: PREGABALIN
     Indication: NEUROPATHY PERIPHERAL
     Dosage: 50 MG, 2X/DAY
     Route: 048
  2. FAMOTIDINE. [Concomitant]
     Active Substance: FAMOTIDINE
     Dosage: 20 MG, 1X/DAY
  3. PRADAXA [Concomitant]
     Active Substance: DABIGATRAN ETEXILATE MESYLATE
     Indication: ANTICOAGULANT THERAPY
     Dosage: 150MG TWICE A DAY, IN THE MORNING AND EVENING
  4. DILTIAZEM [Concomitant]
     Active Substance: DILTIAZEM
     Dosage: 180 MG, 1X/DAY
  5. GLIPIZIDE. [Concomitant]
     Active Substance: GLIPIZIDE
     Indication: DIABETES MELLITUS
     Dosage: 5MG IN MORNING AND 5MG AT NIGHT
  6. ROPINIROLE. [Concomitant]
     Active Substance: ROPINIROLE
     Dosage: 1 MG, 1X/DAY
  7. ATORVASTATIN [Concomitant]
     Active Substance: ATORVASTATIN
     Dosage: 20MG ONCE A DAY IN THE EVENING
  8. FOLIC ACID. [Concomitant]
     Active Substance: FOLIC ACID
     Dosage: 1MG ONCE A DAY IN THE MORNING
  9. BRIMONIDINE [Concomitant]
     Active Substance: BRIMONIDINE TARTRATE
     Indication: GLAUCOMA
     Dosage: A DROP EVERY NIGHT IN EACH EYE
     Route: 047
  10. DIGOXIN. [Concomitant]
     Active Substance: DIGOXIN
     Dosage: 125MCG ONCE IN THE MORNING
  11. LEVEMIR [Concomitant]
     Active Substance: INSULIN DETEMIR
     Dosage: 4 UNITS ONCE IN THE EVENING
  12. LYRICA [Suspect]
     Active Substance: PREGABALIN
     Indication: NEURALGIA
     Dosage: 100 MG, 2X/DAY
     Route: 048
  13. CALCIUM 600 WITH VITAMIN D [Concomitant]
     Dosage: UNK, 1X/DAY
  14. LEVEMIR [Concomitant]
     Active Substance: INSULIN DETEMIR
     Indication: DIABETES MELLITUS
     Dosage: 9 IU, 1X/DAY
  15. ASPIRIN. [Concomitant]
     Active Substance: ASPIRIN
     Dosage: 81MG IN THE MORNING
  16. POLYETHYLENE GLYCOL [Concomitant]
     Active Substance: POLYETHYLENE GLYCOLS
     Indication: DYSPEPSIA
     Dosage: UNK
  17. METOPROLOL [Concomitant]
     Active Substance: METOPROLOL
     Dosage: 100MG ONCE A DAY IN THE MORNING

REACTIONS (28)
  - Cardiac disorder [Unknown]
  - Insomnia [Unknown]
  - Fall [Unknown]
  - Body height decreased [Unknown]
  - Eye swelling [Recovered/Resolved]
  - Thrombosis [Recovering/Resolving]
  - Disease progression [Not Recovered/Not Resolved]
  - Hypoacusis [Unknown]
  - Feeling abnormal [Unknown]
  - Urticaria [Recovering/Resolving]
  - Swelling face [Recovered/Resolved]
  - Peripheral arterial occlusive disease [Recovering/Resolving]
  - Memory impairment [Unknown]
  - Peroneal nerve palsy [Not Recovered/Not Resolved]
  - Hypersensitivity [Recovered/Resolved]
  - Nasal oedema [Recovered/Resolved]
  - Calcinosis [Recovering/Resolving]
  - Condition aggravated [Not Recovered/Not Resolved]
  - Confusional state [Unknown]
  - Drug ineffective [Unknown]
  - Diabetes mellitus [Not Recovered/Not Resolved]
  - Limb discomfort [Unknown]
  - Muscular weakness [Not Recovered/Not Resolved]
  - Neuropathy peripheral [Not Recovered/Not Resolved]
  - Burning sensation [Unknown]
  - Pruritus [Recovered/Resolved]
  - Lip swelling [Recovered/Resolved]
  - Rash [Recovering/Resolving]

NARRATIVE: CASE EVENT DATE: 2006
